FAERS Safety Report 13980890 (Version 1)
Quarter: 2017Q3

REPORT INFORMATION
  Report Type: Spontaneous
  Country: US (occurrence: US)
  Receive Date: 20170918
  Receipt Date: 20170918
  Transmission Date: 20171128
  Serious: No
  Sender: FDA-Public Use
  Company Number: US-TEVA-729988ACC

PATIENT
  Sex: Female

DRUGS (2)
  1. FEXOFENADINE 180 MG 571 [Suspect]
     Active Substance: FEXOFENADINE HYDROCHLORIDE
     Indication: SNEEZING
  2. FEXOFENADINE 180 MG 571 [Suspect]
     Active Substance: FEXOFENADINE HYDROCHLORIDE
     Indication: RHINORRHOEA
     Dosage: 180 MILLIGRAM DAILY;
     Route: 048
     Dates: start: 20161228, end: 20161228

REACTIONS (4)
  - Drug ineffective [Not Recovered/Not Resolved]
  - Condition aggravated [Not Recovered/Not Resolved]
  - Rhinorrhoea [None]
  - Sneezing [None]

NARRATIVE: CASE EVENT DATE: 20161228
